FAERS Safety Report 8335275-X (Version None)
Quarter: 2012Q2

REPORT INFORMATION
  Report Type: 
  Country: None (occurrence: None)
  Receive Date: 20120503
  Receipt Date: 20120424
  Transmission Date: 20120825
  Serious: No
  Sender: FDA-Public Use
  Company Number: US-BAYER-2012-041486

PATIENT
  Age: 46 Year
  Sex: Female
  Weight: 66 kg

DRUGS (5)
  1. TYLENOL PM [Concomitant]
  2. B KOMPLEX [B5,B3,B6,B2,B1 HCL] [Concomitant]
  3. NAPROXEN SODIUM [Suspect]
     Indication: ARTHRITIS
     Dosage: 2 DF, QD
     Route: 048
     Dates: start: 20120407, end: 20120419
  4. CALCIUM PLUS VIT C [Concomitant]
  5. FAMCICLOVIR [Concomitant]

REACTIONS (1)
  - PAIN [None]
